FAERS Safety Report 23541993 (Version 2)
Quarter: 2024Q4

REPORT INFORMATION
  Report Type: Report from Study
  Country: BR (occurrence: BR)
  Receive Date: 20240220
  Receipt Date: 20241023
  Transmission Date: 20250114
  Serious: Yes (Hospitalization, Other)
  Sender: TAKEDA
  Company Number: BR-TAKEDA-2024TUS014781

PATIENT
  Age: 7 Year
  Sex: Female

DRUGS (3)
  1. HUMAN IMMUNOGLOBULIN G\HYALURONIDASE RECOMBINANT HUMAN [Suspect]
     Active Substance: HUMAN IMMUNOGLOBULIN G\HYALURONIDASE (HUMAN RECOMBINANT)
     Indication: Primary immunodeficiency syndrome
     Dosage: 2 DOSAGE FORM, QD
     Route: 058
  2. HUMAN IMMUNOGLOBULIN G\HYALURONIDASE RECOMBINANT HUMAN [Suspect]
     Active Substance: HUMAN IMMUNOGLOBULIN G\HYALURONIDASE (HUMAN RECOMBINANT)
     Dosage: 10 GRAM, Q3WEEKS
     Route: 058
  3. NOVALGINA [Concomitant]
     Active Substance: ACETAMINOPHEN\CAFFEINE
     Indication: Product used for unknown indication
     Dosage: UNK, QD
     Route: 048

REACTIONS (10)
  - Pneumonia [Unknown]
  - Bronchiolitis [Unknown]
  - Illness [Unknown]
  - Decreased immune responsiveness [Unknown]
  - Immunoglobulins decreased [Unknown]
  - Product dose omission issue [Unknown]
  - Inappropriate schedule of product administration [Unknown]
  - Product prescribing error [Unknown]
  - Asthma [Unknown]
  - Influenza like illness [Unknown]

NARRATIVE: CASE EVENT DATE: 20240117
